FAERS Safety Report 8759984 (Version 1)
Quarter: 2012Q4

REPORT INFORMATION
  Report Type: 
  Country: US (occurrence: US)
  Receive Date: 20120829
  Receipt Date: 20120829
  Transmission Date: 20130627
  Serious: Yes (Hospitalization)
  Sender: FDA-Public Use
  Company Number: US-B.I. PHARMACEUTICALS,INC./RIDGEFIELD-2012-BP-20552BP

PATIENT
  Age: 74 None
  Sex: Male

DRUGS (4)
  1. SPIRIVA [Suspect]
     Indication: CHRONIC OBSTRUCTIVE PULMONARY DISEASE
     Dosage: 18 mcg
     Route: 055
     Dates: start: 201204, end: 201206
  2. ATIVAN [Concomitant]
     Indication: ANXIETY
     Route: 048
     Dates: start: 2011
  3. AMBIEN [Concomitant]
     Indication: INSOMNIA
     Dates: start: 2011
  4. FLOMAX [Concomitant]
     Indication: PROSTATOMEGALY
     Dates: start: 2006

REACTIONS (6)
  - Atrial fibrillation [Not Recovered/Not Resolved]
  - Dysuria [Recovered/Resolved]
  - Urinary tract obstruction [Recovered/Resolved]
  - Urinary retention [Recovered/Resolved]
  - Mountain sickness acute [Recovered/Resolved]
  - Dyspnoea [Not Recovered/Not Resolved]
